FAERS Safety Report 7419202-5 (Version None)
Quarter: 2011Q2

REPORT INFORMATION
  Report Type: 
  Country: None (occurrence: None)
  Receive Date: 20110415
  Receipt Date: 20110321
  Transmission Date: 20111010
  Serious: No
  Sender: FDA-Public Use
  Company Number: US-B.I. PHARMACEUTICALS,INC./RIDGEFIELD-2011-BP-02235BP

PATIENT
  Sex: Female

DRUGS (6)
  1. DIGOXIN [Concomitant]
     Dosage: 0.25 MG
     Route: 048
     Dates: start: 19890101
  2. LISINOPRIL [Concomitant]
     Indication: HYPERTENSION
     Dosage: 40 MG
     Route: 048
  3. METOPROLOL TARTRATE [Concomitant]
     Indication: HYPERTENSION
     Dosage: 25 MG
     Route: 048
     Dates: start: 20090101
  4. SYNTHROID [Concomitant]
     Indication: THYROID DISORDER
     Dosage: 0.075 MG
     Route: 048
     Dates: start: 19890101
  5. HYDROCHLOROTHIAZIDE [Concomitant]
     Indication: HYPERTENSION
     Dosage: 25 MG
     Route: 048
     Dates: start: 19940101
  6. PRADAXA [Suspect]
     Indication: ATRIAL FIBRILLATION
     Dosage: 300 MG
     Route: 048
     Dates: start: 20110117

REACTIONS (2)
  - PHOTOPSIA [None]
  - PHOTOPHOBIA [None]
